FAERS Safety Report 24203055 (Version 2)
Quarter: 2024Q4

REPORT INFORMATION
  Report Type: Spontaneous
  Country: US (occurrence: US)
  Receive Date: 20240813
  Receipt Date: 20241106
  Transmission Date: 20250114
  Serious: Yes (Death, Hospitalization)
  Sender: UCB
  Company Number: US-UCBSA-2024038804

PATIENT
  Sex: Female

DRUGS (1)
  1. CIMZIA [Suspect]
     Active Substance: CERTOLIZUMAB PEGOL
     Indication: Rheumatoid arthritis
     Dosage: 400 MILLIGRAM, EV 4 WEEKS
     Route: 058
     Dates: start: 202405

REACTIONS (2)
  - Death [Fatal]
  - Heart rate abnormal [Unknown]

NARRATIVE: CASE EVENT DATE: 20240101
